FAERS Safety Report 21302282 (Version 2)
Quarter: 2022Q4

REPORT INFORMATION
  Report Type: Spontaneous
  Country: US (occurrence: US)
  Receive Date: 20220907
  Receipt Date: 20221012
  Transmission Date: 20230113
  Serious: No
  Sender: FDA-Public Use
  Company Number: US-JNJFOC-20220909477

PATIENT
  Sex: Female

DRUGS (1)
  1. OPSUMIT [Interacting]
     Active Substance: MACITENTAN
     Indication: Product used for unknown indication
     Route: 048
     Dates: start: 20200304

REACTIONS (3)
  - Vomiting [Not Recovered/Not Resolved]
  - COVID-19 [Recovered/Resolved]
  - Drug interaction [Recovered/Resolved]
